FAERS Safety Report 7351278-6 (Version None)
Quarter: 2011Q1

REPORT INFORMATION
  Report Type: 
  Country: None (occurrence: None)
  Receive Date: 20110314
  Receipt Date: 20110308
  Transmission Date: 20110831
  Serious: Yes (Other)
  Sender: FDA-Public Use
  Company Number: ES-PFIZER INC-2011051426

PATIENT
  Sex: Female

DRUGS (1)
  1. XALATAN [Suspect]

REACTIONS (1)
  - IRIS HYPERPIGMENTATION [None]
